FAERS Safety Report 4312029-2 (Version None)
Quarter: 2004Q1

REPORT INFORMATION
  Report Type: 
  Country: None (occurrence: None)
  Receive Date: 20040303
  Receipt Date: 20040217
  Transmission Date: 20041129
  Serious: Yes (Hospitalization)
  Sender: FDA-Public Use
  Company Number: S04-FRA-00859-01

PATIENT
  Age: 78 Year
  Sex: Female

DRUGS (4)
  1. SEROPRAM (CITALOPRAM HYDROBROMIDE) [Suspect]
     Dosage: 20 MG QD PO
     Route: 048
     Dates: end: 20030904
  2. LEXOMIL (BROMAZEPAM) [Suspect]
     Dates: end: 20030904
  3. TERCIAN (CYAMEMAZINE) [Suspect]
     Dosage: 40 MG QD PO
     Route: 048
     Dates: end: 20030907
  4. EXELON [Concomitant]

REACTIONS (10)
  - AGITATION [None]
  - ANTIPHOSPHOLIPID SYNDROME [None]
  - ANXIETY [None]
  - DEHYDRATION [None]
  - DIET REFUSAL [None]
  - GENERAL PHYSICAL HEALTH DETERIORATION [None]
  - HYPERTONIA [None]
  - SKIN NODULE [None]
  - SOMNOLENCE [None]
  - STAPHYLOCOCCAL INFECTION [None]
